FAERS Safety Report 8057993-3 (Version None)
Quarter: 2011Q4

REPORT INFORMATION
  Report Type: 
  Country: None (occurrence: None)
  Receive Date: 20111220
  Receipt Date: 20110509
  Transmission Date: 20120403
  Serious: Yes (Hospitalization)
  Sender: FDA-Public Use
  Company Number: PHHY2011US38970

PATIENT
  Age: 72 Year
  Sex: Female

DRUGS (1)
  1. MYFORTIC [Suspect]
     Indication: RENAL TRANSPLANT
     Dosage: 180 MG,  BID, ORAL
     Route: 048
     Dates: start: 20100124

REACTIONS (2)
  - OSTEOMYELITIS [None]
  - DIABETES MELLITUS [None]
